FAERS Safety Report 10065086 (Version 6)
Quarter: 2014Q4

REPORT INFORMATION
  Report Type: Report from Study
  Country: RO (occurrence: RO)
  Receive Date: 20140408
  Receipt Date: 20141021
  Transmission Date: 20150528
  Serious: Yes (Hospitalization)
  Sender: FDA-Public Use
  Company Number: RO-OTSUKA-US-2014-10636

PATIENT

DRUGS (3)
  1. BLINDED OPC-14597 [Suspect]
     Active Substance: CILOSTAZOL
     Dosage: UNK
     Dates: start: 20140310, end: 20140310
  2. LORAZEPAM. [Concomitant]
     Active Substance: LORAZEPAM
     Indication: INSOMNIA
     Dosage: 1 MG MILLIGRAM(S), QD
     Route: 048
     Dates: start: 20140213
  3. BLINDED OPC-14597 [Suspect]
     Active Substance: CILOSTAZOL
     Indication: BIPOLAR I DISORDER
     Dosage: UNK
     Route: 065
     Dates: start: 20130916, end: 20140310

REACTIONS (1)
  - Bipolar I disorder [Recovered/Resolved]

NARRATIVE: CASE EVENT DATE: 20140402
